FAERS Safety Report 18864763 (Version 1)
Quarter: 2021Q1

REPORT INFORMATION
  Report Type: Spontaneous
  Country: CN (occurrence: CN)
  Receive Date: 20210208
  Receipt Date: 20210208
  Transmission Date: 20210420
  Serious: Yes (Hospitalization, Other)
  Sender: FDA-Public Use
  Company Number: CN-NOVOPROD-785497

PATIENT
  Age: 61 Year
  Sex: Male
  Weight: 55 kg

DRUGS (2)
  1. NOVOMIX 30 PENFILL [Suspect]
     Active Substance: INSULIN ASPART
     Indication: TYPE 2 DIABETES MELLITUS
     Dosage: 10 U IN THE MORNING AND 8 U IN THE EVENING; 8 U, BID; 7 U IN THE MORNING AND 6 U IN THE EVENING.
     Route: 058
     Dates: start: 20210111
  2. NOVOMIX 30 PENFILL [Suspect]
     Active Substance: INSULIN ASPART
     Dosage: DOSE DECREASED  7 U IN THE MORNING AND 6 U IN THE EVENING
     Route: 058
     Dates: end: 20210113

REACTIONS (2)
  - Vomiting [Recovered/Resolved]
  - Hypoglycaemia [Recovered/Resolved]

NARRATIVE: CASE EVENT DATE: 20210111
